FAERS Safety Report 6732838-X (Version None)
Quarter: 2010Q2

REPORT INFORMATION
  Report Type: 
  Country: None (occurrence: None)
  Receive Date: 20100519
  Receipt Date: 20100506
  Transmission Date: 20101027
  Serious: Yes (Hospitalization, Other)
  Sender: FDA-Public Use
  Company Number: GB-ELI_LILLY_AND_COMPANY-GB201005001788

PATIENT
  Age: 29 Year
  Sex: Female

DRUGS (6)
  1. CYMBALTA [Suspect]
     Indication: PAIN
     Dosage: 60 MG, 2/D
     Route: 048
     Dates: start: 20100101, end: 20100416
  2. AMITRIPTLINE HYDROCHLORIDE TAB [Concomitant]
  3. IPROFEN [Concomitant]
  4. KETAMINE HCL [Concomitant]
  5. METHADONE [Concomitant]
  6. PARACETAMOL [Concomitant]

REACTIONS (4)
  - AMNESIA [None]
  - MUSCLE SPASMS [None]
  - MYALGIA [None]
  - OFF LABEL USE [None]
